FAERS Safety Report 4430034-2 (Version None)
Quarter: 2004Q3

REPORT INFORMATION
  Report Type: 
  Country: None (occurrence: None)
  Receive Date: 20040820
  Receipt Date: 20030407
  Transmission Date: 20050211
  Serious: Yes (Hospitalization, Disabling, Other)
  Sender: FDA-Public Use
  Company Number: US-MERCK-0304USA00748

PATIENT
  Age: 65 Year
  Sex: Male
  Weight: 105 kg

DRUGS (27)
  1. VICODIN [Concomitant]
     Route: 065
  2. NORVASC [Concomitant]
     Route: 065
  3. ASPIRIN [Concomitant]
     Route: 065
     Dates: start: 20020405, end: 20040201
  4. ZITHROMAX [Concomitant]
     Route: 048
     Dates: start: 20001125, end: 20001128
  5. COGENTIN [Concomitant]
     Route: 048
     Dates: start: 20001125, end: 20001201
  6. TEGRETOL-XR [Concomitant]
     Route: 048
     Dates: start: 20001125, end: 20001201
  7. MONOPRIL [Concomitant]
     Route: 048
     Dates: start: 19990902
  8. NEURONTIN [Concomitant]
     Route: 065
  9. LITHIUM CARBONATE [Concomitant]
     Route: 048
     Dates: start: 20001122
  10. LITHIUM CARBONATE [Concomitant]
     Route: 048
     Dates: start: 20001122
  11. CLARITIN-D [Concomitant]
     Route: 065
  12. ATIVAN [Concomitant]
     Route: 065
  13. ATIVAN [Concomitant]
     Route: 065
     Dates: start: 20001101, end: 20001201
  14. ZYPREXA [Concomitant]
     Route: 048
     Dates: start: 20001124, end: 20001101
  15. ZYPREXA [Concomitant]
     Route: 048
     Dates: start: 20001101
  16. ZYPREXA [Concomitant]
     Route: 048
     Dates: start: 20001101
  17. SEROQUEL [Concomitant]
     Route: 065
  18. VIOXX [Suspect]
     Indication: SPINAL OSTEOARTHRITIS
     Route: 048
     Dates: start: 19990101
  19. VIOXX [Suspect]
     Route: 048
     Dates: start: 20001101, end: 20001101
  20. VIOXX [Suspect]
     Route: 048
     Dates: start: 20001101
  21. VIOXX [Suspect]
     Indication: BACK PAIN
     Route: 048
     Dates: start: 19990101
  22. VIOXX [Suspect]
     Route: 048
     Dates: start: 20001101, end: 20001101
  23. VIOXX [Suspect]
     Route: 048
     Dates: start: 20001101
  24. NAVANE [Concomitant]
     Route: 048
     Dates: start: 20001125, end: 20001201
  25. COUMADIN [Concomitant]
     Route: 065
     Dates: start: 20010201, end: 20010712
  26. COUMADIN [Concomitant]
     Route: 065
     Dates: start: 20010201, end: 20010712
  27. COUMADIN [Concomitant]
     Route: 065
     Dates: start: 20020205, end: 20020511

REACTIONS (73)
  - ABDOMINAL PAIN UPPER [None]
  - ABNORMAL BEHAVIOUR [None]
  - ACCIDENT [None]
  - ACCIDENT AT HOME [None]
  - ACTIVATED PARTIAL THROMBOPLASTIN TIME PROLONGED [None]
  - ANTIPHOSPHOLIPID ANTIBODIES [None]
  - ANXIETY [None]
  - BACK PAIN [None]
  - BALANCE DISORDER [None]
  - BIPOLAR DISORDER [None]
  - BRADYCARDIA [None]
  - BREAST PAIN [None]
  - CARDIAC ANEURYSM [None]
  - CARDIAC DISORDER [None]
  - CARDIAC FAILURE CONGESTIVE [None]
  - CARDIAC STRESS TEST ABNORMAL [None]
  - CELLULITIS [None]
  - CEREBRAL ATROPHY [None]
  - CEREBRAL INFARCTION [None]
  - CEREBROVASCULAR ACCIDENT [None]
  - CHEST PAIN [None]
  - CONFUSIONAL STATE [None]
  - CONGENITAL ATRIAL SEPTAL DEFECT [None]
  - CORONARY ARTERY DISEASE [None]
  - CORONARY ARTERY RESTENOSIS [None]
  - DEPRESSION [None]
  - DILATATION ATRIAL [None]
  - DILATATION VENTRICULAR [None]
  - DIVERTICULUM [None]
  - DRUG DEPENDENCE [None]
  - DYSPEPSIA [None]
  - DYSPNOEA [None]
  - EMOTIONAL DISTRESS [None]
  - FLASHBACK [None]
  - GAIT DISTURBANCE [None]
  - HAEMORRHOIDS [None]
  - HEADACHE [None]
  - HYPERCOAGULATION [None]
  - HYPERTROPHY BREAST [None]
  - INJURY [None]
  - INTERMITTENT CLAUDICATION [None]
  - INTRACRANIAL ANEURYSM [None]
  - IRRITABILITY [None]
  - LACUNAR INFARCTION [None]
  - MAJOR DEPRESSION [None]
  - MICTURITION URGENCY [None]
  - MYOCARDIAL INFARCTION [None]
  - NERVOUSNESS [None]
  - NIGHTMARE [None]
  - OBSESSIVE-COMPULSIVE DISORDER [None]
  - OEDEMA PERIPHERAL [None]
  - PAIN [None]
  - PAIN IN EXTREMITY [None]
  - POLLAKIURIA [None]
  - PORTAL HYPERTENSION [None]
  - POST-TRAUMATIC STRESS DISORDER [None]
  - PSYCHOTIC DISORDER [None]
  - PULMONARY HYPERTENSION [None]
  - RESTLESSNESS [None]
  - ROAD TRAFFIC ACCIDENT [None]
  - SELF-INJURIOUS IDEATION [None]
  - SPINAL OSTEOARTHRITIS [None]
  - STRESS SYMPTOMS [None]
  - SUICIDAL IDEATION [None]
  - SUPRAVENTRICULAR EXTRASYSTOLES [None]
  - SUPRAVENTRICULAR TACHYCARDIA [None]
  - THROMBOEMBOLIC STROKE [None]
  - TRANSIENT ISCHAEMIC ATTACK [None]
  - TRICUSPID VALVE INCOMPETENCE [None]
  - UPPER RESPIRATORY TRACT INFECTION [None]
  - VARICES OESOPHAGEAL [None]
  - VENTRICULAR EXTRASYSTOLES [None]
  - WEIGHT INCREASED [None]
